FAERS Safety Report 8457212 (Version 15)
Quarter: 2013Q4

REPORT INFORMATION
  Report Type: Report from Study
  Country: JP (occurrence: JP)
  Receive Date: 20120313
  Receipt Date: 20131122
  Transmission Date: 20140711
  Serious: Yes (Hospitalization, Other)
  Sender: FDA-Public Use
  Company Number: JP-VERTEX PHARMACEUTICALS INC.-AE-2012-003528

PATIENT
  Age: 65 Year
  Sex: Male

DRUGS (9)
  1. VX-950 (TELAPREVIR) [Suspect]
     Indication: CHRONIC HEPATITIS C
     Dosage: 2250 MG, QD
     Route: 048
     Dates: start: 20120117, end: 20120228
  2. REBETOL [Suspect]
     Indication: CHRONIC HEPATITIS C
     Dosage: 800 MG, QD
     Route: 048
     Dates: start: 20120117, end: 20120206
  3. REBETOL [Suspect]
     Dosage: 400 MG, QD
     Route: 048
     Dates: start: 20120207, end: 20120213
  4. REBETOL [Suspect]
     Dosage: 200 MG, QD
     Route: 048
     Dates: start: 20120214, end: 20120228
  5. PEGINTRON [Suspect]
     Indication: CHRONIC HEPATITIS C
     Dosage: 1.5 ?G/KG, QW
     Route: 058
     Dates: start: 20120117, end: 20120221
  6. ZYLORIC [Suspect]
     Indication: ADVERSE EVENT
     Dosage: 100 MG, QD
     Route: 048
     Dates: start: 20120131, end: 20120306
  7. MAGMITT [Concomitant]
     Dosage: 330 MG, QD/PRN
     Route: 048
     Dates: start: 20120214, end: 20120507
  8. PANTOSIN [Concomitant]
     Dosage: 200 MG, QD
     Route: 048
     Dates: start: 20120309, end: 20120507
  9. URSO [Concomitant]
     Dosage: 600 MG, QD
     Route: 048
     Dates: start: 20120522

REACTIONS (2)
  - Drug reaction with eosinophilia and systemic symptoms [Recovered/Resolved]
  - Anaemia [Not Recovered/Not Resolved]
